FAERS Safety Report 25153380 (Version 2)
Quarter: 2025Q2

REPORT INFORMATION
  Report Type: Spontaneous
  Country: FR (occurrence: FR)
  Receive Date: 20250403
  Receipt Date: 20250425
  Transmission Date: 20250717
  Serious: Yes (Hospitalization, Other)
  Sender: SANDOZ
  Company Number: FR-SANDOZ-SDZ2025FR020023

PATIENT
  Age: 58 Year
  Sex: Female

DRUGS (3)
  1. ZOLEDRONIC ACID [Suspect]
     Active Substance: ZOLEDRONIC ACID
     Indication: Osteoporosis
     Route: 065
     Dates: start: 20250314
  2. ACETAMINOPHEN\OPIUM [Concomitant]
     Active Substance: ACETAMINOPHEN\OPIUM
     Indication: Product used for unknown indication
     Route: 065
  3. Lamaline [Concomitant]
     Indication: Product used for unknown indication
     Route: 065

REACTIONS (19)
  - Cataract [Unknown]
  - Influenza [Unknown]
  - Movement disorder [Unknown]
  - Throat tightness [Unknown]
  - Dysphagia [Unknown]
  - Loose tooth [Unknown]
  - Urine output decreased [Unknown]
  - Hypoaesthesia [Unknown]
  - Pain in jaw [Unknown]
  - Toothache [Unknown]
  - Conjunctivitis [Unknown]
  - Nausea [Unknown]
  - Constipation [Unknown]
  - Abdominal pain [Unknown]
  - Paraesthesia [Unknown]
  - Dyspnoea [Unknown]
  - Pain [Unknown]
  - Dizziness [Unknown]
  - Wrong technique in product usage process [Unknown]
